FAERS Safety Report 4915995-7 (Version None)
Quarter: 2006Q1

REPORT INFORMATION
  Report Type: 
  Country: None (occurrence: None)
  Receive Date: 20060214
  Receipt Date: 20060125
  Transmission Date: 20060701
  Serious: Yes (Death, Hospitalization, Other)
  Sender: FDA-Public Use
  Company Number: US200601004268

PATIENT
  Age: 69 Year
  Sex: Male

DRUGS (3)
  1. HUMULIN NPH(HUMAN INSULIN (RDNA ORIGIN) NPH UNKNOWN MANUFACTURER) UNKN [Suspect]
     Indication: DIABETES MELLITUS
  2. HUMULIN R [Suspect]
     Indication: DIABETES MELLITUS
  3. INSULIN HUMAN (INSULIN HUMAN PROINSULIN 2 UNKNOWN FORMULATION) UNKNOWN [Suspect]
     Indication: DIABETES MELLITUS

REACTIONS (7)
  - ARTERIOSCLEROSIS [None]
  - BLINDNESS UNILATERAL [None]
  - CARDIAC FAILURE [None]
  - CEREBROVASCULAR ACCIDENT [None]
  - RENAL FAILURE [None]
  - RETINOPATHY [None]
  - TRANSIENT ISCHAEMIC ATTACK [None]
